FAERS Safety Report 7494429-5 (Version None)
Quarter: 2011Q2

REPORT INFORMATION
  Report Type: 
  Country: None (occurrence: None)
  Receive Date: 20110520
  Receipt Date: 20110510
  Transmission Date: 20111010
  Serious: Yes (Other)
  Sender: FDA-Public Use
  Company Number: US-AMGEN-USASP2011024376

PATIENT
  Age: 56 Year
  Sex: Female

DRUGS (3)
  1. ENBREL [Suspect]
     Indication: PSORIATIC ARTHROPATHY
  2. ENBREL [Suspect]
     Indication: ANKYLOSING SPONDYLITIS
     Dosage: 50 MG, QWK
     Dates: start: 20040101
  3. ENBREL [Suspect]
     Indication: PSORIASIS

REACTIONS (9)
  - NECK PAIN [None]
  - MENISCUS LESION [None]
  - JOINT INJECTION [None]
  - TEMPORAL ARTERITIS [None]
  - MUSCLE TIGHTNESS [None]
  - PSORIASIS [None]
  - MUSCULOSKELETAL PAIN [None]
  - OVERWEIGHT [None]
  - ARTHRALGIA [None]
